FAERS Safety Report 6705045-4 (Version None)
Quarter: 2010Q2

REPORT INFORMATION
  Report Type: 
  Country: None (occurrence: None)
  Receive Date: 20100430
  Receipt Date: 20100421
  Transmission Date: 20101027
  Serious: Yes (Other)
  Sender: FDA-Public Use
  Company Number: B0649162A

PATIENT
  Age: 56 Year
  Sex: Female

DRUGS (5)
  1. ZOFRAN [Suspect]
     Route: 042
     Dates: start: 20091201, end: 20091201
  2. SOTALOL HCL [Concomitant]
     Indication: HYPOTHYROIDISM
     Route: 065
  3. DIUMIDE K [Concomitant]
     Indication: HYPOTHYROIDISM
     Route: 065
  4. PROCYCLIDINE HYDROCHLORIDE 2MG TAB [Concomitant]
     Route: 065
  5. DIAZEPAM [Concomitant]
     Route: 065

REACTIONS (3)
  - DYSKINESIA [None]
  - EXTRAPYRAMIDAL DISORDER [None]
  - OCULOGYRIC CRISIS [None]
